FAERS Safety Report 24455320 (Version 2)
Quarter: 2024Q4

REPORT INFORMATION
  Report Type: Spontaneous
  Country: MX (occurrence: MX)
  Receive Date: 20241017
  Receipt Date: 20241018
  Transmission Date: 20250115
  Serious: No
  Sender: ROCHE
  Company Number: MX-ROCHE-3481240

PATIENT
  Age: 50 Year
  Sex: Female

DRUGS (2)
  1. RITUXIMAB [Suspect]
     Active Substance: RITUXIMAB
     Indication: Pemphigus
     Dosage: FOR TWO DOSES AND A THIRD DOSE 6 MONTHS LATER
     Route: 041
  2. RITUXIMAB [Suspect]
     Active Substance: RITUXIMAB
     Dosage: ULTRA LOW DOSE
     Route: 041

REACTIONS (1)
  - Urinary tract infection [Recovered/Resolved]
